FAERS Safety Report 22284874 (Version 2)
Quarter: 2023Q2

REPORT INFORMATION
  Report Type: Spontaneous
  Country: RU (occurrence: RU)
  Receive Date: 20230504
  Receipt Date: 20230516
  Transmission Date: 20230721
  Serious: Yes (Other)
  Sender: FDA-Public Use
  Company Number: RU-002147023-NVSC2023RU099309

PATIENT

DRUGS (2)
  1. FILGRASTIM [Suspect]
     Active Substance: FILGRASTIM
     Indication: Haematopoietic stem cell mobilisation
     Dosage: 5 UG/KG, Q12H (FROM THE 8TH DAY FROM THE BEGINNING OF THERAPY UNTIL THE LAST DAY OF LEUKAPHERESIS)
     Route: 065
  2. CYTARABINE [Suspect]
     Active Substance: CYTARABINE
     Indication: Haematopoietic stem cell mobilisation
     Dosage: 800 MG/M2, Q12H (ON DAYS 1 AND 2 (TOTAL DOSE 1.6 G/M2))
     Route: 065

REACTIONS (1)
  - Neutropenia [Unknown]
